FAERS Safety Report 5515910-1 (Version None)
Quarter: 2007Q4

REPORT INFORMATION
  Report Type: 
  Country: None (occurrence: None)
  Receive Date: 20071114
  Receipt Date: 20071108
  Transmission Date: 20080405
  Serious: Yes (Death, Hospitalization)
  Sender: FDA-Public Use
  Company Number: CA-BAYER-200715680GDS

PATIENT
  Age: 72 Year
  Sex: Male
  Weight: 77 kg

DRUGS (7)
  1. SORAFENIB [Suspect]
     Indication: HEPATIC NEOPLASM MALIGNANT
     Dosage: TOTAL DAILY DOSE: 800 MG
     Route: 048
     Dates: start: 20070301, end: 20070912
  2. MICARDIS [Concomitant]
     Indication: HYPERTENSION
     Route: 048
     Dates: start: 19950101, end: 20070914
  3. ATIVAN [Concomitant]
     Indication: INSOMNIA
     Route: 048
     Dates: start: 20060307
  4. TYLENOL W/ CODEINE NO. 3 [Concomitant]
     Indication: BACK PAIN
     Route: 048
     Dates: start: 20070701
  5. ALLOPURINOL [Concomitant]
     Indication: GOUT
     Route: 065
     Dates: start: 19800101, end: 20070309
  6. FENTANYL [Concomitant]
     Indication: PAIN
     Dosage: TOTAL DAILY DOSE: 600 ?G
     Route: 062
     Dates: start: 20070923, end: 20070924
  7. MORPHINE [Concomitant]
     Indication: PAIN
     Route: 042
     Dates: start: 20070923, end: 20070924

REACTIONS (2)
  - HEPATIC FAILURE [None]
  - PULMONARY EMBOLISM [None]
